FAERS Safety Report 14419819 (Version 1)
Quarter: 2018Q1

REPORT INFORMATION
  Report Type: Spontaneous
  Country: US (occurrence: US)
  Receive Date: 20180121
  Receipt Date: 20180121
  Transmission Date: 20180509
  Serious: Yes (Life-Threatening, Disabling, Other)
  Sender: FDA-Public Use
  Company Number: None

PATIENT
  Age: 69 Year
  Sex: Female
  Weight: 66.15 kg

DRUGS (10)
  1. LIOTHYRONINE [Concomitant]
     Active Substance: LIOTHYRONINE
  2. LOSARTIN [Concomitant]
     Active Substance: LOSARTAN
  3. DULOXETINE. [Concomitant]
     Active Substance: DULOXETINE
  4. OMEGA 3 [Concomitant]
     Active Substance: OMEGA-3 FATTY ACIDS
  5. LEVOTHYROXINE. [Concomitant]
     Active Substance: LEVOTHYROXINE
  6. VITAMIN B12 [Concomitant]
     Active Substance: CYANOCOBALAMIN
  7. VITAMIN D [Concomitant]
     Active Substance: CHOLECALCIFEROL
  8. FISH OIL [Concomitant]
     Active Substance: FISH OIL
  9. MELATONIN [Concomitant]
     Active Substance: MELATONIN
  10. CYMBALTA [Suspect]
     Active Substance: DULOXETINE HYDROCHLORIDE
     Indication: HOT FLUSH
     Route: 048
     Dates: start: 20070720, end: 20180104

REACTIONS (11)
  - Nausea [None]
  - Headache [None]
  - Seizure [None]
  - Vomiting [None]
  - Muscle spasms [None]
  - Balance disorder [None]
  - Drug withdrawal syndrome [None]
  - Suicidal ideation [None]
  - Migraine [None]
  - Tinnitus [None]
  - Fall [None]

NARRATIVE: CASE EVENT DATE: 20180104
